FAERS Safety Report 5094938-2 (Version None)
Quarter: 2006Q3

REPORT INFORMATION
  Report Type: 
  Country: None (occurrence: None)
  Receive Date: 20060901
  Receipt Date: 20060821
  Transmission Date: 20061208
  Serious: Yes (Hospitalization)
  Sender: FDA-Public Use
  Company Number: FR-JNJFOC-20060804460

PATIENT
  Age: 41 Year
  Sex: Female

DRUGS (5)
  1. GYNO PEVARYL [Suspect]
     Indication: VAGINAL INFECTION
     Route: 067
     Dates: start: 20060717, end: 20060721
  2. LEXOMIL [Suspect]
     Indication: DEPRESSION
     Route: 048
     Dates: start: 20060717, end: 20060721
  3. SUSTIVA [Suspect]
     Indication: HIV INFECTION
     Route: 065
  4. TRUVADA [Suspect]
     Indication: HIV INFECTION
     Route: 065
     Dates: start: 20060713, end: 20060721
  5. FLUOXETINE [Suspect]
     Indication: DEPRESSION
     Route: 065
     Dates: start: 20060717, end: 20060721

REACTIONS (3)
  - HEADACHE [None]
  - PYREXIA [None]
  - RASH [None]
